FAERS Safety Report 20672526 (Version 1)
Quarter: 2022Q2

REPORT INFORMATION
  Report Type: Spontaneous
  Country: US (occurrence: US)
  Receive Date: 20220405
  Receipt Date: 20220405
  Transmission Date: 20220721
  Serious: Yes (Other)
  Sender: FDA-Public Use
  Company Number: US-LUPIN PHARMACEUTICALS INC.-2022-04881

PATIENT
  Age: 84 Year
  Sex: Male

DRUGS (2)
  1. CLOBETASOL [Suspect]
     Active Substance: CLOBETASOL
     Indication: Dermatosis
     Dosage: UNK
     Route: 065
  2. CEMIPLIMAB [Concomitant]
     Active Substance: CEMIPLIMAB
     Indication: Chronic lymphocytic leukaemia recurrent
     Dosage: UNK
     Route: 065

REACTIONS (1)
  - Drug ineffective [Unknown]
